FAERS Safety Report 15955987 (Version 1)
Quarter: 2019Q1

REPORT INFORMATION
  Report Type: Spontaneous
  Country: US (occurrence: US)
  Receive Date: 20190213
  Receipt Date: 20190213
  Transmission Date: 20190417
  Serious: No
  Sender: FDA-Public Use
  Company Number: US-MYLANLABS-2019M1008090

PATIENT

DRUGS (2)
  1. BUTORPHANOL TARTRATE NASAL SOLUTION, USP [Suspect]
     Active Substance: BUTORPHANOL TARTRATE
     Indication: RENAL COLIC
     Dosage: UNK
     Dates: start: 20190116
  2. BUTORPHANOL TARTRATE NASAL SOLUTION, USP [Suspect]
     Active Substance: BUTORPHANOL TARTRATE
     Dosage: USING IT FOR 20 YEARS

REACTIONS (2)
  - Product dropper issue [Unknown]
  - Off label use [Not Recovered/Not Resolved]
